FAERS Safety Report 25386195 (Version 1)
Quarter: 2025Q2

REPORT INFORMATION
  Report Type: Spontaneous
  Country: US (occurrence: None)
  Receive Date: 20250530
  Receipt Date: 20250530
  Transmission Date: 20250716
  Serious: Yes (Life-Threatening, Disabling)
  Sender: FDA-CTU
  Company Number: None

PATIENT
  Age: 46 Year
  Sex: Female
  Weight: 81 kg

DRUGS (1)
  1. DULOXETINE [Suspect]
     Active Substance: DULOXETINE
     Indication: Depression
     Dosage: OTHER QUANTITY : 1 CAPSULE(S);?FREQUENCY : DAILY;?
     Route: 048

REACTIONS (24)
  - Weight increased [None]
  - Withdrawal syndrome [None]
  - Loss of personal independence in daily activities [None]
  - Mental disorder [None]
  - Vomiting [None]
  - Economic problem [None]
  - Headache [None]
  - Hyperhidrosis [None]
  - Amnesia [None]
  - Influenza [None]
  - Dizziness [None]
  - Akathisia [None]
  - Balance disorder [None]
  - Gait disturbance [None]
  - Depression [None]
  - Anxiety [None]
  - Tachycardia [None]
  - Tinnitus [None]
  - Insomnia [None]
  - Tremor [None]
  - Suicidal ideation [None]
  - Screaming [None]
  - Claustrophobia [None]
  - Photophobia [None]

NARRATIVE: CASE EVENT DATE: 20221218
